FAERS Safety Report 20594517 (Version 5)
Quarter: 2023Q1

REPORT INFORMATION
  Report Type: Report from Study
  Country: US (occurrence: US)
  Receive Date: 20220315
  Receipt Date: 20230110
  Transmission Date: 20230417
  Serious: Yes (Death, Hospitalization, Other)
  Sender: FDA-Public Use
  Company Number: US-ARGENX-2022-ARGX-US000237

PATIENT

DRUGS (1)
  1. VYVGART [Suspect]
     Active Substance: EFGARTIGIMOD ALFA-FCAB
     Indication: Myasthenia gravis
     Dosage: UNK
     Dates: start: 20220211

REACTIONS (17)
  - Death [Fatal]
  - Cellulitis [Unknown]
  - Fracture treatment [Unknown]
  - Atrial fibrillation [Unknown]
  - Fall [Unknown]
  - Rib fracture [Unknown]
  - Hip fracture [Unknown]
  - Dyspnoea [Unknown]
  - Choking sensation [Unknown]
  - Fatigue [Unknown]
  - Asthenia [Unknown]
  - Vomiting [Unknown]
  - Wheezing [Unknown]
  - Weight increased [Unknown]
  - Decreased appetite [Unknown]
  - Product dose omission issue [Unknown]
  - Nasopharyngitis [Unknown]

NARRATIVE: CASE EVENT DATE: 20220211
